FAERS Safety Report 7693913-9 (Version None)
Quarter: 2011Q3

REPORT INFORMATION
  Report Type: 
  Country: None (occurrence: None)
  Receive Date: 20110819
  Receipt Date: 20110816
  Transmission Date: 20111222
  Serious: Yes (Hospitalization)
  Sender: FDA-Public Use
  Company Number: US-TEVA-296814USA

PATIENT

DRUGS (1)
  1. BLEOMYCIN [Suspect]

REACTIONS (6)
  - PYREXIA [None]
  - HYPERHIDROSIS [None]
  - NAUSEA [None]
  - WHITE BLOOD CELL COUNT DECREASED [None]
  - HYPOTENSION [None]
  - CHILLS [None]
